FAERS Safety Report 25157456 (Version 1)
Quarter: 2025Q2

REPORT INFORMATION
  Report Type: Spontaneous
  Country: CA (occurrence: CA)
  Receive Date: 20250403
  Receipt Date: 20250403
  Transmission Date: 20250717
  Serious: Yes (Other)
  Sender: COVIS PHARMA
  Company Number: CA-AMAGP-2025COV00403

PATIENT
  Age: 62 Year
  Sex: Female

DRUGS (6)
  1. RILUTEK [Suspect]
     Active Substance: RILUZOLE
     Indication: Product used for unknown indication
     Dates: end: 20250315
  2. RADICAVA [Suspect]
     Active Substance: EDARAVONE
     Indication: Amyotrophic lateral sclerosis
     Route: 048
     Dates: start: 20250228
  3. MAGNESIUM [Concomitant]
     Active Substance: MAGNESIUM
  4. LITHIUM CARBONATE [Concomitant]
     Active Substance: LITHIUM CARBONATE
  5. SYNTHROID [Concomitant]
     Active Substance: LEVOTHYROXINE SODIUM
  6. BIOTENE NOS [Concomitant]
     Active Substance: UNSPECIFIED INGREDIENT

REACTIONS (6)
  - Choking [Unknown]
  - Throat irritation [Unknown]
  - Decreased appetite [Unknown]
  - Nausea [Unknown]
  - Dysgeusia [Recovered/Resolved]
  - Asthenia [Unknown]

NARRATIVE: CASE EVENT DATE: 20250309
